FAERS Safety Report 25957174 (Version 1)
Quarter: 2025Q4

REPORT INFORMATION
  Report Type: Spontaneous
  Country: US (occurrence: None)
  Receive Date: 20251024
  Receipt Date: 20251024
  Transmission Date: 20260117
  Serious: Yes (Life-Threatening, Hospitalization)
  Sender: FDA-CTU
  Company Number: None

PATIENT
  Age: 41 Year
  Sex: Female
  Weight: 69.75 kg

DRUGS (12)
  1. PREGABALIN [Suspect]
     Active Substance: PREGABALIN
     Indication: Migraine
     Dosage: OTHER QUANTITY : 180 CAPSULE(S)?OTHER FREQUENCY : 2 TIMES A DAY
     Route: 048
     Dates: start: 20200924
  2. PREGABALIN [Suspect]
     Active Substance: PREGABALIN
     Indication: Seizure
  3. PREGABALIN [Suspect]
     Active Substance: PREGABALIN
     Indication: Anxiety
  4. DULOXETINE [Suspect]
     Active Substance: DULOXETINE
     Dates: start: 20200924
  5. TYLENOL [Concomitant]
     Active Substance: ACETAMINOPHEN
  6. RESTASIS [Concomitant]
     Active Substance: CYCLOSPORINE
  7. REFRESH OPTIVE ADVANCED [Concomitant]
     Active Substance: CARBOXYMETHYLCELLULOSE SODIUM\GLYCERIN\POLYSORBATE 80
  8. OLANZAPINE [Concomitant]
     Active Substance: OLANZAPINE
  9. CYCLOBENZAPRINE [Concomitant]
     Active Substance: CYCLOBENZAPRINE
  10. OMEPRAZOLE [Concomitant]
     Active Substance: OMEPRAZOLE
  11. PROPRANOLOL [Concomitant]
     Active Substance: PROPRANOLOL HYDROCHLORIDE
  12. TOPAMAX [Concomitant]
     Active Substance: TOPIRAMATE

REACTIONS (2)
  - Somnolence [None]
  - Asthenia [None]

NARRATIVE: CASE EVENT DATE: 20251024
